FAERS Safety Report 14361162 (Version 1)
Quarter: 2018Q1

REPORT INFORMATION
  Report Type: Spontaneous
  Country: US (occurrence: US)
  Receive Date: 20180107
  Receipt Date: 20180107
  Transmission Date: 20180509
  Serious: No
  Sender: FDA-Public Use
  Company Number: US-ASTRAZENECA-2017SF28772

PATIENT
  Sex: Female

DRUGS (2)
  1. RHINOCORT AQUA [Concomitant]
     Active Substance: BUDESONIDE
     Dosage: UNKNOWN
     Route: 065
  2. RHINOCORT ALLERGY [Suspect]
     Active Substance: BUDESONIDE
     Route: 045

REACTIONS (7)
  - Ill-defined disorder [Unknown]
  - Feeling abnormal [Unknown]
  - Sinusitis [Unknown]
  - Drug ineffective [Unknown]
  - Epistaxis [Unknown]
  - Irritability [Unknown]
  - Haemorrhage [Unknown]
